FAERS Safety Report 7377851-7 (Version None)
Quarter: 2011Q1

REPORT INFORMATION
  Report Type: 
  Country: None (occurrence: None)
  Receive Date: 20110328
  Receipt Date: 20110316
  Transmission Date: 20110831
  Serious: Yes (Other)
  Sender: FDA-Public Use
  Company Number: US-JNJFOC-20110205103

PATIENT
  Sex: Male

DRUGS (9)
  1. HYDROCHLOROTHIAZIDE [Concomitant]
     Route: 048
  2. RISPERDAL [Concomitant]
     Indication: SCHIZOPHRENIA
     Dosage: STARTED PRIOR TO 2005
     Route: 048
  3. PRAVASTATIN [Concomitant]
  4. INVEGA SUSTENNA [Suspect]
     Indication: SCHIZOPHRENIA
     Route: 030
  5. INVEGA SUSTENNA [Suspect]
     Route: 030
  6. TRAZODONE [Concomitant]
     Indication: SCHIZOPHRENIA
     Route: 048
  7. GEMFIBROZIL [Concomitant]
     Route: 048
  8. LISINOPRIL [Concomitant]
     Route: 048
  9. GEODON [Concomitant]
     Indication: SCHIZOPHRENIA
     Route: 048

REACTIONS (3)
  - PRODUCT QUALITY ISSUE [None]
  - LIP SWELLING [None]
  - ANGIOEDEMA [None]
